FAERS Safety Report 7337406-7 (Version None)
Quarter: 2011Q1

REPORT INFORMATION
  Report Type: 
  Country: None (occurrence: None)
  Receive Date: 20110222
  Receipt Date: 20110124
  Transmission Date: 20110831
  Serious: Yes (Hospitalization)
  Sender: FDA-Public Use
  Company Number: 2011MA001390

PATIENT
  Age: 72 Year
  Sex: Male

DRUGS (5)
  1. SIMVASTATIN [Concomitant]
  2. TROMBYL [Concomitant]
  3. METFORMIN HYDROCHLORIDE [Suspect]
     Indication: PRODUCT USED FOR UNKNOWN INDICATION
     Dosage: PO
     Route: 048
     Dates: end: 20101127
  4. ENALAPRIL MALEATE [Suspect]
     Indication: PRODUCT USED FOR UNKNOWN INDICATION
     Dosage: PO
     Route: 048
     Dates: end: 20101127
  5. SYMBICORT [Concomitant]

REACTIONS (4)
  - RENAL FAILURE ACUTE [None]
  - HAEMODIALYSIS [None]
  - BLOOD POTASSIUM INCREASED [None]
  - LACTIC ACIDOSIS [None]
